FAERS Safety Report 22339876 (Version 1)
Quarter: 2023Q2

REPORT INFORMATION
  Report Type: Spontaneous
  Country: HR (occurrence: HR)
  Receive Date: 20230518
  Receipt Date: 20230518
  Transmission Date: 20230722
  Serious: Yes (Other)
  Sender: FDA-Public Use
  Company Number: None

PATIENT
  Sex: Female
  Weight: 50 kg

DRUGS (4)
  1. ACETAMINOPHEN [Suspect]
     Active Substance: ACETAMINOPHEN
     Indication: Product used for unknown indication
     Dosage: 9 GRAM, QD
     Route: 048
     Dates: start: 20230322, end: 20230322
  2. LORATADINE [Suspect]
     Active Substance: LORATADINE
     Indication: Product used for unknown indication
     Dosage: 90 MILLIGRAM, QD, 9 TABLETS OF RINOLAN OF 10 MG
     Route: 048
     Dates: start: 20230322, end: 20230322
  3. EUTHYROX [Suspect]
     Active Substance: LEVOTHYROXINE SODIUM
     Indication: Product used for unknown indication
     Dosage: 225 MICROGRAM, QD, 3 TABLETS OF EUTHYROX OF 75 MG
     Route: 048
     Dates: start: 20230322, end: 20230322
  4. QUETIAPINE [Concomitant]
     Active Substance: QUETIAPINE
     Dosage: SHE TOOK HER USUAL THERAPEUTIC DOSE
     Route: 048

REACTIONS (3)
  - Suicide attempt [Unknown]
  - Intentional overdose [Unknown]
  - No adverse event [Unknown]

NARRATIVE: CASE EVENT DATE: 20230322
